FAERS Safety Report 4790156-3 (Version None)
Quarter: 2005Q4

REPORT INFORMATION
  Report Type: 
  Country: None (occurrence: None)
  Receive Date: 20051005
  Receipt Date: 20051005
  Transmission Date: 20060501
  Serious: Yes (Hospitalization)
  Sender: FDA-Public Use
  Company Number: None

PATIENT
  Sex: Female
  Weight: 79 kg

DRUGS (12)
  1. HEPARIN [Suspect]
     Indication: AORTIC VALVE REPLACEMENT
     Dosage: BOLUS, INFUSION CONT., IV
     Route: 042
     Dates: start: 20050820
  2. HEPARIN [Suspect]
     Indication: INTERNATIONAL NORMALISED RATIO DECREASED
     Dosage: BOLUS, INFUSION CONT., IV
     Route: 042
     Dates: start: 20050820
  3. ATORVASTATIN [Concomitant]
  4. LEVOFLOXACIN [Concomitant]
  5. DILAUDID [Concomitant]
  6. ASPIRIN [Concomitant]
  7. COUMADIN [Concomitant]
  8. METOPROLOL XL [Concomitant]
  9. LANSOPRAZOLE [Concomitant]
  10. VENTOLIN [Concomitant]
  11. ADVAIR DISKUS 100/50 [Concomitant]
  12. POT SODIUM [Concomitant]

REACTIONS (7)
  - ACTIVATED PARTIAL THROMBOPLASTIN TIME PROLONGED [None]
  - CEREBELLAR HAEMORRHAGE [None]
  - CEREBRAL VENTRICLE DILATATION [None]
  - HEADACHE [None]
  - NAUSEA [None]
  - SUBARACHNOID HAEMORRHAGE [None]
  - VOMITING [None]
